FAERS Safety Report 6280614-7 (Version None)
Quarter: 2009Q3

REPORT INFORMATION
  Report Type: 
  Country: None (occurrence: None)
  Receive Date: 20090724
  Receipt Date: 20081003
  Transmission Date: 20100115
  Serious: No
  Sender: FDA-Public Use
  Company Number: A0751231A

PATIENT
  Age: 54 Year
  Sex: Female

DRUGS (2)
  1. AVANDIA [Suspect]
     Dosage: 4MG THREE TIMES PER DAY
     Route: 048
     Dates: start: 20020101, end: 20040101
  2. AVANDAMET [Suspect]
     Route: 048

REACTIONS (6)
  - CARDIAC DISORDER [None]
  - CHEST PAIN [None]
  - DYSPNOEA [None]
  - OEDEMA [None]
  - PALPITATIONS [None]
  - RESPIRATORY DISORDER [None]
